FAERS Safety Report 7290507-4 (Version None)
Quarter: 2011Q1

REPORT INFORMATION
  Report Type: 
  Country: None (occurrence: None)
  Receive Date: 20110214
  Receipt Date: 20110210
  Transmission Date: 20110831
  Serious: No
  Sender: FDA-Public Use
  Company Number: US-PFIZER INC-2010140563

PATIENT
  Age: 28 Year
  Sex: Male
  Weight: 81.6 kg

DRUGS (2)
  1. CELEBREX [Suspect]
     Indication: JOINT SPRAIN
     Dosage: UNK, 1X/DAY
  2. CELEBREX [Suspect]
     Dosage: UNK, 2X/DAY

REACTIONS (1)
  - RASH [None]
